FAERS Safety Report 17420937 (Version 1)
Quarter: 2020Q1

REPORT INFORMATION
  Report Type: Spontaneous
  Country: IT (occurrence: IT)
  Receive Date: 20200214
  Receipt Date: 20200214
  Transmission Date: 20200409
  Serious: Yes (Death, Other)
  Sender: FDA-Public Use
  Company Number: IT-GLAXOSMITHKLINE-IT2020024812

PATIENT
  Age: 69 Year
  Sex: Male
  Weight: 68 kg

DRUGS (9)
  1. TACHIPIRINA [Suspect]
     Active Substance: ACETAMINOPHEN
     Indication: PRODUCT USED FOR UNKNOWN INDICATION
     Dosage: 500 MILLIGRAM, TOTAL
     Route: 048
     Dates: start: 20190520, end: 20190520
  2. XATRAL (ALFUZOSIN HYDROCHLORIDE) [Concomitant]
     Indication: BENIGN PROSTATIC HYPERPLASIA
     Dosage: 2.5 MILLIGRAM
     Route: 048
  3. ZIRTEC [Suspect]
     Active Substance: CETIRIZINE HYDROCHLORIDE
     Indication: ANAPHYLAXIS PROPHYLAXIS
     Dosage: 10 MILLIGRAM, TOTAL
     Route: 048
     Dates: start: 20190520, end: 20190520
  4. RANITIDINE. [Suspect]
     Active Substance: RANITIDINE
     Indication: ANAPHYLAXIS PROPHYLAXIS
     Dosage: 50 MILLIGRAM
     Route: 042
     Dates: start: 20190520, end: 20190520
  5. LASIX + K [Concomitant]
     Active Substance: FUROSEMIDE\POTASSIUM CHLORIDE
     Indication: PRODUCT USED FOR UNKNOWN INDICATION
     Dosage: 25 MG
     Route: 048
     Dates: start: 20190520, end: 20190520
  6. NORVASC [Concomitant]
     Active Substance: AMLODIPINE BESYLATE
     Indication: HYPERTENSION
     Dosage: 5 MG
     Route: 048
  7. SOLDESAM [Suspect]
     Active Substance: DEXAMETHASONE
     Indication: ANAPHYLAXIS PROPHYLAXIS
     Dosage: 8 MILLIGRAM, TOTAL
     Route: 042
     Dates: start: 20190520, end: 20190520
  8. CARDIOASPIRIN [Concomitant]
     Active Substance: ASPIRIN
     Indication: PRODUCT USED FOR UNKNOWN INDICATION
     Dosage: 100 MILLIGRAM
     Route: 048
  9. RETINOL [Concomitant]
     Active Substance: RETINOL
     Indication: PRODUCT USED FOR UNKNOWN INDICATION
     Dosage: 2.5 KILO-INTERNATIONAL UNIT
     Route: 048

REACTIONS (1)
  - Sudden death [Fatal]

NARRATIVE: CASE EVENT DATE: 20190520
